FAERS Safety Report 9321943 (Version 1)
Quarter: 2013Q2

REPORT INFORMATION
  Report Type: Spontaneous
  Country: US (occurrence: None)
  Receive Date: 20130528
  Receipt Date: 20130528
  Transmission Date: 20140414
  Serious: Yes (Other)
  Sender: FDA-Public Use
  Company Number: 2013P1006052

PATIENT
  Age: 62 Year
  Sex: Male
  Weight: 146.97 kg

DRUGS (13)
  1. CIPROFLOXACIN [Suspect]
     Indication: BRONCHITIS
     Dates: start: 2011
  2. UNSPECIFIED VITAMINS [Concomitant]
  3. UNSPECIFIED MINERALS [Concomitant]
  4. INSULIN [Concomitant]
  5. L-ARGININE [Concomitant]
  6. CHOLESTEROL SUPPLEMENT [Concomitant]
  7. CERAVE SUN BLOCK [Concomitant]
  8. EUCERIN [Concomitant]
  9. FLUTICASONE [Concomitant]
  10. XLEAR WITH XYLITOL [Concomitant]
  11. ACYCLOVIR [Concomitant]
  12. UNSPECIFIED SUPPLEMENTS [Concomitant]
  13. ENSURE [Concomitant]

REACTIONS (13)
  - Tendon injury [None]
  - Mobility decreased [None]
  - Skin cancer [None]
  - Diabetic foot infection [None]
  - Abasia [None]
  - Myalgia [None]
  - Pain [None]
  - Asthenia [None]
  - Anxiety [None]
  - Restlessness [None]
  - Insomnia [None]
  - Sciatica [None]
  - Atrophy [None]
